FAERS Safety Report 5975863-9 (Version None)
Quarter: 2008Q4

REPORT INFORMATION
  Report Type: 
  Country: None (occurrence: None)
  Receive Date: 20081202
  Receipt Date: 20081128
  Transmission Date: 20090506
  Serious: Yes (Hospitalization)
  Sender: FDA-Public Use
  Company Number: A0758811A

PATIENT
  Age: 76 Year
  Sex: Female
  Weight: 60 kg

DRUGS (4)
  1. SERETIDE [Suspect]
     Indication: CHRONIC OBSTRUCTIVE PULMONARY DISEASE
     Route: 055
     Dates: start: 20080307, end: 20080320
  2. BAMIFYLLINE [Concomitant]
     Dates: start: 20080307, end: 20080320
  3. ATACAND [Concomitant]
     Dates: start: 20060101
  4. SELOZOK [Concomitant]
     Dates: start: 20060101

REACTIONS (1)
  - THROMBOSIS [None]
